FAERS Safety Report 11998674 (Version 1)
Quarter: 2016Q1

REPORT INFORMATION
  Report Type: Spontaneous
  Country: US (occurrence: None)
  Receive Date: 20160203
  Receipt Date: 20160203
  Transmission Date: 20160526
  Serious: Yes (Disabling)
  Sender: FDA-Public Use
  Company Number: None

PATIENT
  Age: 76 Year
  Sex: Male
  Weight: 77.11 kg

DRUGS (8)
  1. FLOMAX [Concomitant]
     Active Substance: TAMSULOSIN HYDROCHLORIDE
  2. LATUDA [Suspect]
     Active Substance: LURASIDONE HYDROCHLORIDE
     Indication: BIPOLAR I DISORDER
     Dosage: 60MG 1 PILL ONCE DAILY BY MOUTH
     Route: 048
     Dates: start: 20140501
  3. ATIVAN [Concomitant]
     Active Substance: LORAZEPAM
  4. SODIUM BICARBONATE. [Concomitant]
     Active Substance: SODIUM BICARBONATE
  5. VITAMIN D [Concomitant]
     Active Substance: CHOLECALCIFEROL
  6. MELATONIN [Concomitant]
     Active Substance: MELATONIN
  7. LAMICTAL [Concomitant]
     Active Substance: LAMOTRIGINE
  8. LOW DOSE ASPIRIN [Concomitant]
     Active Substance: ASPIRIN

REACTIONS (3)
  - Dyskinesia [None]
  - Disturbance in attention [None]
  - Conversion disorder [None]

NARRATIVE: CASE EVENT DATE: 20151201
